FAERS Safety Report 7270129-1 (Version None)
Quarter: 2011Q1

REPORT INFORMATION
  Report Type: 
  Country: None (occurrence: None)
  Receive Date: 20110202
  Receipt Date: 20110120
  Transmission Date: 20110831
  Serious: Yes (Other)
  Sender: FDA-Public Use
  Company Number: ES-BAYER-2011-006188

PATIENT
  Age: 71 Year
  Sex: Male

DRUGS (10)
  1. SEGURIL [Concomitant]
     Indication: DYSLIPIDAEMIA
     Route: 048
     Dates: start: 20100714, end: 20100919
  2. KETOISDIN [Concomitant]
     Route: 061
     Dates: start: 20100824
  3. ENALAPRIL MALEATE [Concomitant]
     Indication: HYPERTENSION
     Route: 048
     Dates: start: 20100807, end: 20100919
  4. INSPRA [Concomitant]
     Indication: HYPERTENSION
     Route: 048
     Dates: start: 20100806, end: 20100919
  5. PANTOPRAZOLE [Concomitant]
     Dates: start: 20100806
  6. METFORMIN HCL [Concomitant]
     Indication: DIABETES MELLITUS
     Route: 048
     Dates: start: 20100806, end: 20100919
  7. FUROSEMIDA [Concomitant]
  8. ASPIRIN [Suspect]
     Indication: CARDIOVASCULAR EVENT PROPHYLAXIS
     Route: 048
     Dates: start: 20100714, end: 20100919
  9. CARDYL [Concomitant]
     Indication: CORONARY ARTERY DISEASE
     Dates: start: 20100714
  10. CARVEDILOL [Concomitant]
     Dates: start: 20100907

REACTIONS (2)
  - LACTIC ACIDOSIS [None]
  - RENAL TUBULAR NECROSIS [None]
